FAERS Safety Report 8551544-2 (Version None)
Quarter: 2012Q3

REPORT INFORMATION
  Report Type: 
  Country: None (occurrence: None)
  Receive Date: 20120730
  Receipt Date: 20120716
  Transmission Date: 20120928
  Serious: Yes (Hospitalization)
  Sender: FDA-Public Use
  Company Number: FR-ROCHE-1088798

PATIENT
  Sex: Female

DRUGS (5)
  1. IFOSFAMIDE [Interacting]
     Indication: UTERINE LEIOMYOSARCOMA
     Route: 042
     Dates: start: 20120618, end: 20120621
  2. MESNA [Concomitant]
     Indication: UTERINE LEIOMYOSARCOMA
     Route: 042
     Dates: start: 20120618, end: 20120621
  3. METHYLPREDNISOLONE [Concomitant]
     Route: 042
     Dates: start: 20120615, end: 20120621
  4. ZELBORAF [Suspect]
     Indication: MALIGNANT MELANOMA
     Route: 048
     Dates: end: 20120606
  5. ONDANSETRON [Concomitant]
     Route: 042
     Dates: start: 20120618, end: 20120621

REACTIONS (5)
  - ENCEPHALOPATHY [None]
  - DRUG INTERACTION [None]
  - CONFUSIONAL STATE [None]
  - HALLUCINATION [None]
  - AGITATION [None]
